FAERS Safety Report 11631455 (Version 2)
Quarter: 2015Q4

REPORT INFORMATION
  Report Type: Spontaneous
  Country: US (occurrence: US)
  Receive Date: 20151015
  Receipt Date: 20151029
  Transmission Date: 20160304
  Serious: No
  Sender: FDA-Public Use
  Company Number: US-AMGEN-USASP2015104992

PATIENT
  Age: 54 Year
  Sex: Female

DRUGS (1)
  1. ENBREL [Suspect]
     Active Substance: ETANERCEPT
     Indication: ANKYLOSING SPONDYLITIS
     Dosage: UNK UNK, ONCE A WEEK
     Route: 065
     Dates: start: 2015

REACTIONS (4)
  - Oropharyngeal pain [Unknown]
  - Injection site pain [Unknown]
  - Injection site vesicles [Unknown]
  - Underdose [Unknown]

NARRATIVE: CASE EVENT DATE: 2015
